FAERS Safety Report 8990556 (Version 1)
Quarter: 2012Q4

REPORT INFORMATION
  Report Type: 
  Country: FR (occurrence: FR)
  Receive Date: 20121228
  Receipt Date: 20121228
  Transmission Date: 20130627
  Serious: Yes (Hospitalization)
  Sender: FDA-Public Use
  Company Number: FR-UCBSA-073756

PATIENT
  Age: 50 Year
  Sex: Male

DRUGS (17)
  1. KEPPRA [Suspect]
     Indication: CONVULSION
     Route: 048
     Dates: start: 20121005, end: 201210
  2. KEPPRA [Suspect]
     Indication: CONVULSION
     Route: 048
     Dates: start: 201210, end: 20121027
  3. KEPPRA [Suspect]
     Indication: CONVULSION
     Route: 048
     Dates: start: 20121028, end: 20121030
  4. KEPPRA [Suspect]
     Indication: CONVULSION
     Route: 048
     Dates: start: 20121031, end: 20121109
  5. CISPLATINE MYLAN [Suspect]
     Indication: SMALL CELL LUNG CANCER STAGE UNSPECIFIED
     Dosage: 50 MG/100 ML
     Route: 042
     Dates: start: 201208, end: 2012
  6. CISPLATINE MYLAN [Suspect]
     Indication: SMALL CELL LUNG CANCER STAGE UNSPECIFIED
     Route: 042
     Dates: start: 20121005, end: 20121007
  7. CISPLATINE MYLAN [Suspect]
     Indication: SMALL CELL LUNG CANCER STAGE UNSPECIFIED
     Route: 042
     Dates: start: 20121106, end: 20121108
  8. ETOPOSIDE MYLAN [Suspect]
     Indication: SMALL CELL LUNG CANCER STAGE UNSPECIFIED
     Dosage: 20 MG/ML-SOLUTION FOR PERFUSION,
     Route: 042
     Dates: start: 201208, end: 2012
  9. ETOPOSIDE MYLAN [Suspect]
     Indication: SMALL CELL LUNG CANCER STAGE UNSPECIFIED
     Dosage: 20 MG/ML-SOLUTION FOR PERFUSION, DAILY DOSE-200 MG
     Route: 042
     Dates: start: 20121005, end: 20121007
  10. ETOPOSIDE MYLAN [Suspect]
     Indication: SMALL CELL LUNG CANCER STAGE UNSPECIFIED
     Dosage: 20 MG/ML-SOLUTION FOR PERFUSION,
     Route: 042
     Dates: start: 20121106, end: 20121108
  11. URBANYL [Suspect]
     Indication: CONVULSION
     Dosage: DAILY DOSE-20 MG
     Route: 048
     Dates: start: 20121005, end: 20121023
  12. URBANYL [Suspect]
     Indication: CONVULSION
     Route: 048
     Dates: start: 20121028
  13. CARDENSIEL [Concomitant]
  14. KARDEGIC [Concomitant]
  15. TRIATEC [Concomitant]
  16. TRANSIPEG [Concomitant]
  17. METHYLPREDNISOLONE [Concomitant]

REACTIONS (4)
  - Cholestasis [Not Recovered/Not Resolved]
  - Hepatocellular injury [Not Recovered/Not Resolved]
  - Hepatitis acute [Not Recovered/Not Resolved]
  - Convulsion [Unknown]
